FAERS Safety Report 9397772 (Version 2)
Quarter: 2013Q3

REPORT INFORMATION
  Report Type: Report from Study
  Country: FR (occurrence: FR)
  Receive Date: 20130712
  Receipt Date: 20130918
  Transmission Date: 20140515
  Serious: Yes (Death, Other)
  Sender: FDA-Public Use
  Company Number: FR-CELGENEUS-056-C4047-13052677

PATIENT
  Age: 73 Year
  Sex: Female
  Weight: 60 kg

DRUGS (5)
  1. CC-4047 [Suspect]
     Indication: PLASMA CELL MYELOMA RECURRENT
     Dosage: 3 MILLIGRAM
     Route: 048
     Dates: start: 20130131, end: 20130508
  2. DEXAMETHASONE [Concomitant]
     Indication: PLASMA CELL MYELOMA RECURRENT
     Dosage: 20 MILLIGRAM
     Route: 065
     Dates: start: 20130131, end: 20130424
  3. KARDEGIC [Concomitant]
     Indication: PRODUCT USED FOR UNKNOWN INDICATION
     Dosage: 75 MILLIGRAM
     Route: 065
  4. KARDEGIC [Concomitant]
     Dosage: 75 MILLIGRAM
     Route: 065
  5. EPO [Concomitant]
     Indication: ANAEMIA
     Route: 065
     Dates: start: 20130131, end: 20130215

REACTIONS (6)
  - Plasma cell myeloma [Fatal]
  - Neutrophil count decreased [Recovered/Resolved]
  - Platelet count decreased [Fatal]
  - Anaemia [Fatal]
  - Phlebitis superficial [Recovered/Resolved]
  - No therapeutic response [Not Recovered/Not Resolved]
